FAERS Safety Report 9199764 (Version 1)
Quarter: 2013Q1

REPORT INFORMATION
  Report Type: Spontaneous
  Country: US (occurrence: None)
  Receive Date: 20130326
  Receipt Date: 20130326
  Transmission Date: 20140127
  Serious: Yes (Hospitalization)
  Sender: FDA-Public Use
  Company Number: 2013PL000053

PATIENT
  Sex: Male

DRUGS (1)
  1. IMURAN (AZATHIOPRINE) [Suspect]
     Indication: PRODUCT USED FOR UNKNOWN INDICATION
     Dates: start: 200305, end: 201109

REACTIONS (5)
  - Idiopathic thrombocytopenic purpura [None]
  - Pernicious anaemia [None]
  - Glaucoma [None]
  - Osteoporosis [None]
  - Intestinal obstruction [None]
